FAERS Safety Report 4529986-1 (Version None)
Quarter: 2004Q4

REPORT INFORMATION
  Report Type: 
  Country: None (occurrence: None)
  Receive Date: 20041217
  Receipt Date: 20041206
  Transmission Date: 20050328
  Serious: Yes (Hospitalization)
  Sender: FDA-Public Use
  Company Number: BR-JNJFOC-20041202295

PATIENT
  Age: 44 Year
  Sex: Female

DRUGS (4)
  1. HALDOL [Suspect]
     Indication: MENTAL DISORDER
  2. CARBAMAZEPINE [Suspect]
     Indication: DRUG USE FOR UNKNOWN INDICATION
  3. CAPOTEN [Suspect]
     Indication: DRUG USE FOR UNKNOWN INDICATION
  4. BIPERIDEN HYDROCHLORIDE TAB [Concomitant]

REACTIONS (3)
  - MULTIPLE DRUG OVERDOSE INTENTIONAL [None]
  - SOMNOLENCE [None]
  - SUICIDE ATTEMPT [None]
